FAERS Safety Report 4780262-1 (Version None)
Quarter: 2005Q3

REPORT INFORMATION
  Report Type: 
  Country: None (occurrence: None)
  Receive Date: 20050914
  Receipt Date: 20050713
  Transmission Date: 20060218
  Serious: Yes (Hospitalization)
  Sender: FDA-Public Use
  Company Number: 163-20785-05070228 (0)

PATIENT
  Age: 54 Year
  Sex: Male
  Weight: 131 kg

DRUGS (12)
  1. THALOMID [Suspect]
     Indication: MULTIPLE MYELOMA
     Dosage: 100 MG, DAILY, ORAL
     Route: 048
     Dates: start: 20050425, end: 20050505
  2. MELPHALAN (MELPHALAN) (UNKNOWN) [Suspect]
     Indication: MULTIPLE MYELOMA
     Dosage: 400 MG, INTRAVENOUS
     Route: 042
     Dates: start: 20050403, end: 20050403
  3. DEXAMETHASONE [Suspect]
     Indication: MULTIPLE MYELOMA
     Dosage: 20 MG, DAILY, ORAL
     Route: 048
     Dates: start: 20050425, end: 20050728
  4. DIGOXIN [Concomitant]
  5. PRAVACHOL [Concomitant]
  6. MULTIVITAMIN [Concomitant]
  7. CALCIUM (CALCIUM) [Concomitant]
  8. MAGNESIUM (MAGNESIUM) [Concomitant]
  9. FOLIC ACID [Concomitant]
  10. FERREX (FERROUS SULFATE) [Concomitant]
  11. ACYCLOVIR [Concomitant]
  12. DOXYCYCLINE [Concomitant]

REACTIONS (6)
  - ASTHENIA [None]
  - CHILLS [None]
  - COUGH [None]
  - PHARYNGITIS [None]
  - PHARYNGOLARYNGEAL PAIN [None]
  - PNEUMONIA [None]
